FAERS Safety Report 24425683 (Version 1)
Quarter: 2024Q4

REPORT INFORMATION
  Report Type: Report from Study
  Country: CO (occurrence: CO)
  Receive Date: 20241011
  Receipt Date: 20241011
  Transmission Date: 20250115
  Serious: Yes (Hospitalization, Other)
  Sender: UCB
  Company Number: CO-UCBSA-2024051477

PATIENT
  Age: 74 Year
  Sex: Male

DRUGS (7)
  1. ROTIGOTINE [Suspect]
     Active Substance: ROTIGOTINE
     Indication: Parkinson^s disease
     Dosage: 4 MILLIGRAM, ONCE DAILY (QD)
     Route: 062
     Dates: start: 20191226, end: 20210127
  2. ROTIGOTINE [Suspect]
     Active Substance: ROTIGOTINE
     Dosage: 6 MILLIGRAM, ONCE DAILY (QD)
     Route: 062
     Dates: start: 20210128, end: 20220105
  3. ROTIGOTINE [Suspect]
     Active Substance: ROTIGOTINE
     Dosage: 8 MILLIGRAM, ONCE DAILY (QD)
     Route: 062
     Dates: start: 20220106, end: 20230510
  4. ROTIGOTINE [Suspect]
     Active Substance: ROTIGOTINE
     Dosage: 12 MILLIGRAM, ONCE DAILY (QD)
     Route: 062
     Dates: start: 20230511
  5. CARBIDOPA\LEVODOPA [Concomitant]
     Active Substance: CARBIDOPA\LEVODOPA
     Indication: Product used for unknown indication
     Dosage: UNK
  6. RASAGILINE [Concomitant]
     Active Substance: RASAGILINE
     Indication: Product used for unknown indication
     Dosage: UNK
  7. ESCITALOPRAM [Concomitant]
     Active Substance: ESCITALOPRAM OXALATE
     Indication: Product used for unknown indication
     Dosage: UNK

REACTIONS (1)
  - Dementia [Not Recovered/Not Resolved]

NARRATIVE: CASE EVENT DATE: 20240715
